FAERS Safety Report 13448688 (Version 4)
Quarter: 2017Q4

REPORT INFORMATION
  Report Type: Report from Study
  Country: US (occurrence: US)
  Receive Date: 20170417
  Receipt Date: 20171010
  Transmission Date: 20180320
  Serious: Yes (Hospitalization)
  Sender: FDA-Public Use
  Company Number: US-UCBSA-2017014399

PATIENT
  Age: 76 Year
  Sex: Male
  Weight: 104.5 kg

DRUGS (5)
  1. LOVASTATIN. [Concomitant]
     Active Substance: LOVASTATIN
     Indication: DYSLIPIDAEMIA
     Dosage: 40 MG, ONCE DAILY (QD)
     Route: 048
     Dates: start: 2000
  2. FUROSEMIDE. [Concomitant]
     Active Substance: FUROSEMIDE
     Indication: OEDEMA PERIPHERAL
     Dosage: 40 MG, ONCE DAILY (QD)
     Route: 048
  3. LANTUS [Concomitant]
     Active Substance: INSULIN GLARGINE
     Indication: TYPE 2 DIABETES MELLITUS
     Dosage: 30 UNITS
     Route: 058
     Dates: start: 2012
  4. METOPROLOL TARTRATE. [Concomitant]
     Active Substance: METOPROLOL TARTRATE
     Indication: HYPERTENSION
     Dosage: 50 MG, ONCE DAILY (QD)
     Route: 048
     Dates: start: 2012
  5. CERTOLIZUMAB PEGOL [Suspect]
     Active Substance: CERTOLIZUMAB PEGOL
     Indication: PSORIASIS
     Dosage: 200 MG, EV 2 WEEKS(QOW)
     Route: 058
     Dates: start: 20150312, end: 20170406

REACTIONS (1)
  - Cellulitis [Recovered/Resolved]

NARRATIVE: CASE EVENT DATE: 20170404
